FAERS Safety Report 13993807 (Version 1)
Quarter: 2017Q3

REPORT INFORMATION
  Report Type: Spontaneous
  Country: GB (occurrence: GB)
  Receive Date: 20170920
  Receipt Date: 20170920
  Transmission Date: 20171128
  Serious: Yes (Other)
  Sender: FDA-Public Use
  Company Number: PHFR2017GB007709

PATIENT
  Age: 65 Year
  Sex: Male
  Weight: 80 kg

DRUGS (6)
  1. TAMSULOSIN [Suspect]
     Active Substance: TAMSULOSIN
     Indication: URINARY RETENTION
     Dosage: 400 MG, UNK
     Route: 048
     Dates: start: 20170701
  2. ACICLOVIR [Concomitant]
     Active Substance: ACYCLOVIR
     Indication: HERPES ZOSTER
     Dosage: 4 G, UNK
     Route: 048
     Dates: start: 20170714, end: 20170721
  3. NITROFURANTOIN. [Concomitant]
     Active Substance: NITROFURANTOIN
     Indication: URINARY TRACT INFECTION
     Route: 048
     Dates: start: 20170627, end: 20170630
  4. IBUPROFEN. [Concomitant]
     Active Substance: IBUPROFEN
     Indication: HERPES ZOSTER
     Dosage: 10 DF, PRN
     Route: 048
     Dates: start: 20170710, end: 20170721
  5. PARACETAMOL [Concomitant]
     Active Substance: ACETAMINOPHEN
     Indication: PYREXIA
     Dosage: 1 DF, MAX 2G A DAY
     Route: 065
     Dates: start: 20170630, end: 20170721
  6. AUGMENTIN [Concomitant]
     Active Substance: AMOXICILLIN\CLAVULANATE POTASSIUM
     Indication: URINARY TRACT INFECTION
     Route: 065
     Dates: start: 20170630, end: 20170708

REACTIONS (3)
  - Atrial fibrillation [Unknown]
  - Dizziness [Unknown]
  - Heart rate irregular [Unknown]

NARRATIVE: CASE EVENT DATE: 20170725
